FAERS Safety Report 17103130 (Version 2)
Quarter: 2019Q4

REPORT INFORMATION
  Report Type: Report from Study
  Country: FR (occurrence: FR)
  Receive Date: 20191203
  Receipt Date: 20191213
  Transmission Date: 20200122
  Serious: Yes (Hospitalization)
  Sender: FDA-Public Use
  Company Number: FR-ROCHE-2215147

PATIENT
  Age: 74 Year
  Sex: Female
  Weight: 96 kg

DRUGS (53)
  1. CYCLOPHOSPHAMIDE. [Suspect]
     Active Substance: CYCLOPHOSPHAMIDE
     Indication: DIFFUSE LARGE B-CELL LYMPHOMA
     Dosage: DATE OF MOST RECENT DOSE OF  CYCLOPHOSPHAMIDE PRIOR TO SAE ONSET 09/NOV/2018.
     Route: 042
     Dates: start: 20181109
  2. PARACETAMOL [Concomitant]
     Active Substance: ACETAMINOPHEN
     Indication: PREMEDICATION
     Route: 042
     Dates: start: 20181109, end: 20181110
  3. LANTUS [Concomitant]
     Active Substance: INSULIN GLARGINE
     Indication: DIABETES MELLITUS
     Route: 042
  4. XELEVIA [Concomitant]
     Active Substance: SITAGLIPTIN PHOSPHATE
     Indication: DIABETES MELLITUS
     Route: 048
  5. KARDEGIC [Concomitant]
     Active Substance: ASPIRIN DL-LYSINE
     Route: 048
     Dates: start: 20190115
  6. AMLODIPINE [Concomitant]
     Active Substance: AMLODIPINE BESYLATE
     Indication: HYPERTENSION
     Route: 048
  7. EUPRESSYL [URAPIDIL] [Concomitant]
     Active Substance: URAPIDIL
     Indication: HYPERTENSION
     Route: 048
  8. OLIMEL [Concomitant]
     Active Substance: AMINO ACIDS\DEXTROSE\SOYBEAN OIL
     Dosage: EVERY DAY
     Route: 058
     Dates: start: 20181031, end: 20181204
  9. HYOSCINE [Concomitant]
     Active Substance: SCOPOLAMINE
     Indication: LOWER RESPIRATORY TRACT CONGESTION
     Route: 062
     Dates: start: 20181102, end: 20181111
  10. OXYGEN. [Concomitant]
     Active Substance: OXYGEN
     Indication: INFUSION RELATED REACTION
     Route: 065
     Dates: start: 20181110, end: 20181111
  11. BLINDED POLATUZUMAB VEDOTIN [Suspect]
     Active Substance: POLATUZUMAB VEDOTIN
     Indication: DIFFUSE LARGE B-CELL LYMPHOMA
     Dosage: DATE OF MOST RECENT DOSE OF POLATUZUMAB VEDOTIN PRIOR TO SAE ONSET 10/NOV/2018.
     Route: 042
     Dates: start: 20181110
  12. VAXIGRIPTETRA [Concomitant]
     Active Substance: INFLUENZA VIRUS VACCINE QUADRIVALENT TYPE A+B
     Indication: INFLUENZA
  13. FASTURTEC [Concomitant]
     Active Substance: RASBURICASE
     Indication: POLYURIA
     Route: 042
     Dates: start: 20181109, end: 20181109
  14. ATORVASTATINE [ATORVASTATIN] [Concomitant]
     Active Substance: ATORVASTATIN
     Indication: DIABETES MELLITUS
     Route: 048
  15. SOLU-MEDROL [Concomitant]
     Active Substance: METHYLPREDNISOLONE SODIUM SUCCINATE
     Route: 042
     Dates: start: 20181103, end: 20181108
  16. FUNGIZONE [Concomitant]
     Active Substance: AMPHOTERICIN B
     Indication: ORAL FUNGAL INFECTION
     Dosage: 1 TABLESPOON DOSING UNIT
     Route: 048
     Dates: start: 20181102, end: 20181117
  17. PREGABALINE [Concomitant]
     Active Substance: PREGABALIN
     Indication: ANXIETY
     Route: 048
     Dates: start: 20181102
  18. PARACETAMOL [Concomitant]
     Active Substance: ACETAMINOPHEN
     Route: 048
     Dates: start: 20181204, end: 20181204
  19. UROMITEXAN [Concomitant]
     Active Substance: MESNA
     Route: 042
     Dates: start: 20181204, end: 20181204
  20. LASILIX FAIBLE [Concomitant]
     Active Substance: FUROSEMIDE
     Indication: POLYURIA
     Route: 042
     Dates: start: 20181109, end: 20181110
  21. BACTRIM [Concomitant]
     Active Substance: SULFAMETHOXAZOLE\TRIMETHOPRIM
     Indication: ANTIBIOTIC PROPHYLAXIS
     Route: 042
     Dates: start: 20181109, end: 20190527
  22. LOVENOX [Concomitant]
     Active Substance: ENOXAPARIN SODIUM
     Indication: EMBOLISM VENOUS
     Route: 042
     Dates: start: 20181111, end: 20181111
  23. ZOVIRAX [Concomitant]
     Active Substance: ACYCLOVIR
     Indication: ANTIVIRAL PROPHYLAXIS
     Route: 048
     Dates: start: 20181109, end: 20181122
  24. NORMACOL [STERCULIA URENS GUM] [Concomitant]
     Indication: CONSTIPATION
     Route: 048
     Dates: start: 20181106, end: 20181113
  25. HYDROCORTISONE. [Concomitant]
     Active Substance: HYDROCORTISONE
     Indication: PREMEDICATION
     Route: 042
     Dates: start: 20181109, end: 20181110
  26. PRIMPERAN [Concomitant]
     Active Substance: METOCLOPRAMIDE HYDROCHLORIDE
     Indication: PREMEDICATION
     Route: 042
     Dates: start: 20181109, end: 20181110
  27. SALBUTAMOL [Concomitant]
     Active Substance: ALBUTEROL
     Indication: LOWER RESPIRATORY TRACT CONGESTION
     Route: 065
     Dates: start: 20181107, end: 20181110
  28. PARACETAMOL [Concomitant]
     Active Substance: ACETAMINOPHEN
     Indication: PREMEDICATION
     Route: 048
     Dates: start: 20181102, end: 20181111
  29. ACTRAPID [Concomitant]
     Active Substance: INSULIN HUMAN
     Indication: TYPE 1 DIABETES MELLITUS
     Route: 058
     Dates: start: 20181102, end: 20190408
  30. RITUXIMAB. [Suspect]
     Active Substance: RITUXIMAB
     Indication: DIFFUSE LARGE B-CELL LYMPHOMA
     Dosage: DATE OF MOST RECENT DOSE OF RITUXIMAB PRIOR TO SAE ONSET 10/NOV/2018.?MONOTHERAPY IN CYCLES 7 AND 8
     Route: 041
     Dates: start: 20181110
  31. FASTURTEC [Concomitant]
     Active Substance: RASBURICASE
     Indication: TUMOUR LYSIS SYNDROME
  32. LANSOPRAZOLE. [Concomitant]
     Active Substance: LANSOPRAZOLE
     Indication: GASTROOESOPHAGEAL REFLUX DISEASE
     Route: 048
     Dates: start: 20181102, end: 20181123
  33. DOXORUBICIN [Suspect]
     Active Substance: DOXORUBICIN
     Indication: DIFFUSE LARGE B-CELL LYMPHOMA
     Dosage: DATE OF MOST RECENT DOSE OF DOXORUBICIN PRIOR TO SAE ONSET 09/NOV/2018.?ON DAY 1
     Route: 042
     Dates: start: 20181109
  34. DEXCHLORPHENIRAMINE [Concomitant]
     Active Substance: DEXCHLORPHENIRAMINE
     Indication: PREMEDICATION
     Route: 042
     Dates: start: 20181109, end: 20181110
  35. VAXIGRIPTETRA [Concomitant]
     Active Substance: INFLUENZA VIRUS VACCINE QUADRIVALENT TYPE A+B
     Indication: LOWER RESPIRATORY TRACT CONGESTION
     Route: 030
     Dates: start: 20181109, end: 20181109
  36. PERFALGAN [Concomitant]
     Active Substance: ACETAMINOPHEN
     Indication: PREMEDICATION
     Route: 050
     Dates: start: 20181109
  37. LEVEMIR [Concomitant]
     Active Substance: INSULIN DETEMIR
     Indication: DIABETES MELLITUS
     Route: 042
     Dates: start: 20181102, end: 20181226
  38. ESOMEPRAZOLE. [Concomitant]
     Active Substance: ESOMEPRAZOLE MAGNESIUM
     Indication: GASTROOESOPHAGEAL REFLUX DISEASE
     Route: 048
     Dates: end: 20181117
  39. FUNGIZONE [Concomitant]
     Active Substance: AMPHOTERICIN B
     Dosage: TBSP (TABLESPOON DOSING UNIT)
     Route: 048
     Dates: start: 20181029, end: 20181103
  40. LEDERFOLINE [Concomitant]
     Active Substance: LEUCOVORIN CALCIUM
     Indication: ANAEMIA PROPHYLAXIS
     Route: 048
     Dates: start: 20181109, end: 20181124
  41. DUPHALAC [Concomitant]
     Active Substance: LACTULOSE
  42. ZARTAN [Concomitant]
     Indication: HYPERTENSION
     Route: 048
  43. ESOMEPRAZOLE. [Concomitant]
     Active Substance: ESOMEPRAZOLE MAGNESIUM
     Indication: HYPERTENSION
     Route: 048
     Dates: start: 20181102, end: 20181111
  44. DEXCHLORPHENIRAMINE [Concomitant]
     Active Substance: DEXCHLORPHENIRAMINE
     Indication: PREMEDICATION
     Route: 042
     Dates: start: 20181204, end: 20181204
  45. LOSARTAN. [Concomitant]
     Active Substance: LOSARTAN
     Indication: HYPERTENSION
     Route: 048
     Dates: start: 20181102, end: 20181103
  46. PANTOPRAZOLE [Concomitant]
     Active Substance: PANTOPRAZOLE
     Route: 042
     Dates: start: 20181110, end: 20181111
  47. BLINDED VINCRISTINE [Suspect]
     Active Substance: VINCRISTINE
     Indication: DIFFUSE LARGE B-CELL LYMPHOMA
     Dosage: DATE OF MOST RECENT DOSE OF VINCRISTINE PRIOR TO SAE ONSET 09/NOV/2018.?ON DAY 1
     Route: 042
     Dates: start: 20181109
  48. PREDNISONE. [Suspect]
     Active Substance: PREDNISONE
     Indication: DIFFUSE LARGE B-CELL LYMPHOMA
     Dosage: DATE OF MOST RECENT DOSE OF PREDNISONE/PREDNISOLONE/ METHYLPREDNISOLONE PRIOR TO SAE ONSET 10/NOV/20
     Route: 042
     Dates: start: 20181109
  49. UROMITEXAN [Concomitant]
     Active Substance: MESNA
     Indication: PREMEDICATION
     Route: 042
     Dates: start: 20181109, end: 20181109
  50. ZOPHREN [ONDANSETRON] [Concomitant]
     Active Substance: ONDANSETRON
     Indication: PROPHYLAXIS OF NAUSEA AND VOMITING
     Route: 042
     Dates: start: 20181109, end: 20190226
  51. NOVONORM [Concomitant]
     Active Substance: REPAGLINIDE
     Indication: DIABETES MELLITUS
     Route: 048
  52. LYRICA [Concomitant]
     Active Substance: PREGABALIN
     Indication: ANXIETY
     Route: 048
  53. INNOHEP [Concomitant]
     Active Substance: TINZAPARIN SODIUM
     Indication: THROMBOSIS
     Route: 058
     Dates: start: 20181102

REACTIONS (1)
  - Laryngeal obstruction [Recovered/Resolved]

NARRATIVE: CASE EVENT DATE: 20181110
